FAERS Safety Report 23990356 (Version 3)
Quarter: 2024Q3

REPORT INFORMATION
  Report Type: Spontaneous
  Country: US (occurrence: US)
  Receive Date: 20240619
  Receipt Date: 20240924
  Transmission Date: 20241017
  Serious: Yes (Other)
  Sender: BRISTOL MYERS SQUIBB
  Company Number: US-BRISTOL-MYERS SQUIBB COMPANY-2024-096123

PATIENT
  Age: 67 Year
  Sex: Female

DRUGS (39)
  1. POMALYST [Suspect]
     Active Substance: POMALIDOMIDE
     Indication: Plasma cell myeloma
     Dosage: FREQUENCY: DAILY
     Route: 048
     Dates: start: 20230113
  2. POMALYST [Suspect]
     Active Substance: POMALIDOMIDE
     Dosage: FREQUENCY: DAILY
     Route: 048
     Dates: start: 20230113
  3. POMALYST [Suspect]
     Active Substance: POMALIDOMIDE
     Dosage: FREQUENCY: DAILY
     Route: 048
     Dates: start: 20230113
  4. DEXAMETHASONE SODIUM PHOSPHATE [Concomitant]
     Active Substance: DEXAMETHASONE PHOSPHATE\DEXAMETHASONE SODIUM PHOSPHATE
     Indication: Product used for unknown indication
     Dosage: 10 MG/ML
  5. KYPROLIS [Concomitant]
     Active Substance: CARFILZOMIB
     Indication: Product used for unknown indication
     Dosage: VIAL FOR INJ. 1 VIAL
  6. ASPIRIN [Concomitant]
     Active Substance: ASPIRIN
     Indication: Product used for unknown indication
     Dosage: LOW DOSE
  7. XGEVA [Concomitant]
     Active Substance: DENOSUMAB
     Indication: Product used for unknown indication
     Dosage: 120MG/1.7ML INJ, 1.7ML
  8. ACYCLOVIR [Concomitant]
     Active Substance: ACYCLOVIR
     Indication: Product used for unknown indication
  9. ALBUTEROL SULFATE [Concomitant]
     Active Substance: ALBUTEROL SULFATE
     Indication: Product used for unknown indication
     Dosage: INH (200 PUFFS), INHALE 2 PUFFS BY MOUTH EVERY 6 HOURS AS NEEDED FOR WHEEZING
  10. BACLOFEN [Concomitant]
     Active Substance: BACLOFEN
     Indication: Product used for unknown indication
  11. CHLORPROMAZINE [Concomitant]
     Active Substance: CHLORPROMAZINE
     Indication: Product used for unknown indication
     Dosage: 1 TABLET EVERY MORNING AND 2 TABLETS AT BEDTIME.
  12. CHLORPROMAZINE [Concomitant]
     Active Substance: CHLORPROMAZINE
     Dosage: 1 TABLET EVERY MORNING AND 2 TABLETS AT BEDTIME. TAKE 1 TABLET IN THE AFTERNOON AS NEEDED FOR ANXIET
  13. CIPROFLOXACIN [Concomitant]
     Active Substance: CIPROFLOXACIN
     Indication: Product used for unknown indication
     Dosage: INSTIL 1-2 DROPS IN RIGHT EYE THREE TIMES DAILY
     Route: 047
  14. COMIRNATY [Concomitant]
     Indication: Product used for unknown indication
     Dosage: (COVID 2024-25) 0.3 ML ADMINISTER 0.3 ML IN THE MUSCLE AS DIRECTED
  15. DESCOVY [Concomitant]
     Active Substance: EMTRICITABINE\TENOFOVIR ALAFENAMIDE FUMARATE
     Indication: Product used for unknown indication
     Dosage: 200 MG/25 MG,
     Route: 048
  16. DOXYCYCLINE HYCLATE [Concomitant]
     Active Substance: DOXYCYCLINE HYCLATE
     Indication: Product used for unknown indication
     Dosage: FOR 7 DAYS
     Route: 048
  17. DRONABINOL [Concomitant]
     Active Substance: DRONABINOL
     Indication: Product used for unknown indication
     Route: 048
  18. ERYTHROMYCIN [Concomitant]
     Active Substance: ERYTHROMYCIN
     Indication: Product used for unknown indication
     Dosage: APPLY 0.5 INCH STIPR TO LEFT EYE FOUR TIMES DAILY FOR 7 DAYS
     Route: 047
  19. ESCITALOPRAM [Concomitant]
     Active Substance: ESCITALOPRAM OXALATE
     Indication: Product used for unknown indication
     Dosage: AT BEDTIME
     Route: 048
  20. FAMOTIDINE [Concomitant]
     Active Substance: FAMOTIDINE
     Indication: Product used for unknown indication
     Route: 048
  21. FLUTICASONE [Concomitant]
     Active Substance: FLUTICASONE
     Indication: Rhinitis allergic
     Dosage: SHAKE WELL AND SPRAY 2 SPRAYS IN EACH NOSTRIL EVERY DAY WHEN NEEDED
     Route: 045
  22. FLUZONE HIGH-DOSE NOS [Concomitant]
     Active Substance: INFLUENZA A VIRUS A/CALIFORNIA/7/2009 X-179A (H1N1) ANTIGEN (FORMALDEHYDE INACTIVATED)\INFLUENZA A V
     Indication: Product used for unknown indication
     Dosage: 65 PLUS, ADMINISTER 0.5 ML IN MUSCLE TODAY
     Route: 030
     Dates: start: 20240913
  23. HYDROCORTISONE [Concomitant]
     Active Substance: HYDROCORTISONE\HYDROCORTISONE ACETATE
     Indication: Haemorrhoids
     Dosage: AS NEEDED
     Route: 054
  24. HYOSCYAMINE [Concomitant]
     Active Substance: HYOSCYAMINE
     Indication: Diarrhoea
     Dosage: DISSOLVE ONE TABLET UNDER THE TONGUE EVERY 4 HOURS AS NEEDED
     Route: 060
  25. HYOSCYAMINE [Concomitant]
     Active Substance: HYOSCYAMINE
     Indication: Irritable bowel syndrome
  26. LINZESS [Concomitant]
     Active Substance: LINACLOTIDE
     Indication: Product used for unknown indication
     Dosage: BEFORE BREAKFAST
     Route: 048
  27. LINZESS [Concomitant]
     Active Substance: LINACLOTIDE
     Route: 048
  28. MAGNESIUM OXIDE [Concomitant]
     Active Substance: MAGNESIUM OXIDE
     Indication: Product used for unknown indication
     Dosage: AT NIGHT TIME
     Route: 048
  29. MORPHINE SULFATE [Concomitant]
     Active Substance: MORPHINE SULFATE
     Indication: Cancer pain
     Dosage: ER TABS (12 H)
     Route: 048
  30. MORPHINE SULFATE [Concomitant]
     Active Substance: MORPHINE SULFATE
     Dosage: ER TABS (12 H)
     Route: 048
  31. MUPIROCIN [Concomitant]
     Active Substance: MUPIROCIN
     Indication: Product used for unknown indication
     Dosage: APPLY TOPICALLY TO THE AFFECTED AREA TWICE DAILY FOR 7 DAYS
     Route: 061
  32. OLANZAPINE [Concomitant]
     Active Substance: OLANZAPINE
     Indication: Product used for unknown indication
     Dosage: AT BEDTIME
     Route: 048
  33. OLANZAPINE [Concomitant]
     Active Substance: OLANZAPINE
     Dosage: EVERY MORNING
     Route: 048
  34. OLANZAPINE [Concomitant]
     Active Substance: OLANZAPINE
     Dosage: AT BEDTIME
     Route: 048
  35. OMEPRAZOLE [Concomitant]
     Active Substance: OMEPRAZOLE
     Indication: Product used for unknown indication
     Route: 048
  36. ONDANSETRON [Concomitant]
     Active Substance: ONDANSETRON
     Indication: Nausea
     Dosage: EVERY 6 HOURS AS NEEDED
     Route: 048
  37. ONDANSETRON [Concomitant]
     Active Substance: ONDANSETRON
     Indication: Nausea
     Dosage: DISSOLVE 1 TABLET IN TONGUE EVERY 8 HOURS AS NEEDED
     Route: 048
  38. ONDANSETRON [Concomitant]
     Active Substance: ONDANSETRON
     Dosage: EVERY 6 HOURS AS NEEDED
     Route: 048
  39. OXYCODONE AND ACETAMINOPHEN [Concomitant]
     Active Substance: ACETAMINOPHEN\OXYCODONE HYDROCHLORIDE
     Indication: Breakthrough pain
     Dosage: 7.5 - 325 MG, EVERY 4 HOURS AS NEEDED
     Route: 048

REACTIONS (3)
  - Breast cancer [Unknown]
  - Procedural pain [Unknown]
  - Nausea [Unknown]

NARRATIVE: CASE EVENT DATE: 20240601
